FAERS Safety Report 23226705 (Version 1)
Quarter: 2023Q4

REPORT INFORMATION
  Report Type: Spontaneous
  Country: DE (occurrence: DE)
  Receive Date: 20231124
  Receipt Date: 20231124
  Transmission Date: 20240110
  Serious: Yes (Life-Threatening, Hospitalization)
  Sender: FDA-Public Use
  Company Number: DE-DCGMA-22198243

PATIENT
  Age: 69 Year
  Sex: Female
  Weight: 47 kg

DRUGS (4)
  1. OXALIPLATIN [Suspect]
     Active Substance: OXALIPLATIN
     Indication: Rectal cancer
     Dosage: 145 MILLIGRAM, UNK
     Route: 040
  2. AKYNZEO [Concomitant]
     Indication: Product used for unknown indication
     Dosage: 300/0.5 MG
     Route: 048
  3. MCP [Concomitant]
     Active Substance: METOCLOPRAMIDE HYDROCHLORIDE
     Indication: Product used for unknown indication
     Dosage: 10 MILLIGRAM
     Route: 040
  4. DEXAMETHASONE [Concomitant]
     Active Substance: DEXAMETHASONE
     Indication: Product used for unknown indication
     Dosage: 8 MILLIGRAM
     Route: 040

REACTIONS (9)
  - Infusion related reaction [Unknown]
  - Tachycardia [Unknown]
  - Hypersensitivity [Unknown]
  - Malaise [Unknown]
  - General physical health deterioration [Unknown]
  - Chills [Unknown]
  - Blood pressure decreased [Unknown]
  - Nausea [Unknown]
  - Body temperature increased [Unknown]

NARRATIVE: CASE EVENT DATE: 20220510
